FAERS Safety Report 10026020 (Version 2)
Quarter: 2014Q2

REPORT INFORMATION
  Report Type: Spontaneous
  Country: FR (occurrence: None)
  Receive Date: 20140318
  Receipt Date: 20140527
  Transmission Date: 20141212
  Serious: Yes (Hospitalization, Other)
  Sender: FDA-Public Use
  Company Number: 2014FR003061

PATIENT
  Age: 69 Year
  Sex: Female
  Weight: 105 kg

DRUGS (6)
  1. ICLUSIG [Suspect]
     Indication: CHRONIC MYELOID LEUKAEMIA
     Route: 048
     Dates: start: 20130415, end: 201306
  2. SPRYCEL [Suspect]
     Indication: CHRONIC MYELOID LEUKAEMIA
     Route: 048
     Dates: start: 20130128, end: 20130305
  3. VOLIBRIS (AMBRISENTAN) [Concomitant]
  4. PREVISCAN (FLUINDIONE) [Concomitant]
  5. ASPEGIC (ACETYLSALICYLATE LYSINE) [Concomitant]
  6. REMODULIN (TREPROSTINIL SODIUM) [Concomitant]

REACTIONS (6)
  - Pulmonary arterial hypertension [None]
  - Dermatitis exfoliative [None]
  - Ischaemic stroke [None]
  - Deep vein thrombosis [None]
  - Cardiac failure [None]
  - Pleural effusion [None]
